FAERS Safety Report 21049033 (Version 1)
Quarter: 2022Q3

REPORT INFORMATION
  Report Type: Spontaneous
  Country: US (occurrence: US)
  Receive Date: 20220706
  Receipt Date: 20220706
  Transmission Date: 20221027
  Serious: No
  Sender: FDA-Public Use
  Company Number: US-BAYER-2022A081565

PATIENT
  Age: 44 Year
  Sex: Female

DRUGS (11)
  1. CLARITIN [Suspect]
     Active Substance: LORATADINE
     Dosage: NOT AVAILABLE, 2 PER DAY
  2. ZYRTEC [Concomitant]
     Active Substance: CETIRIZINE HYDROCHLORIDE
     Dosage: 2 ZYRTEC, NOT AVAILABLE
  3. HUMIRA [Concomitant]
     Active Substance: ADALIMUMAB
  4. PFIZER-BIONTECH COVID-19 VACCINE [Concomitant]
     Active Substance: TOZINAMERAN
     Dosage: UNK, ARM RIGHT
     Dates: start: 20220429
  5. PURIFIED KLEBSIELLA PNEUMONIA BACTERIOPHAGE [Concomitant]
     Dosage: UNK, ARM RIGHT
     Dates: start: 20220429
  6. TETANUS TOXOID, REDUCED DIPHTHERIA TOXOID AND ACELLULAR PERTUSSIS VACC [Concomitant]
     Active Substance: TETANUS TOXOID, REDUCED DIPHTHERIA TOXOID AND ACELLULAR PERTUSSIS VACCINE ADSORBED, TDAP
     Dosage: UNK, ARM LEFT
     Dates: start: 20220429
  7. PREGABALIN [Concomitant]
     Active Substance: PREGABALIN
  8. ESTRADIOL [Concomitant]
     Active Substance: ESTRADIOL
  9. KEPPRA [Concomitant]
     Active Substance: LEVETIRACETAM
  10. GEO POTA K [Concomitant]
  11. HYDROXYCHLOROQUINE SULFATE [Concomitant]
     Active Substance: HYDROXYCHLOROQUINE SULFATE

REACTIONS (4)
  - Drug ineffective [None]
  - Rash [Recovering/Resolving]
  - Burning sensation [Recovering/Resolving]
  - Erythema [Recovering/Resolving]
